FAERS Safety Report 17281568 (Version 1)
Quarter: 2020Q1

REPORT INFORMATION
  Report Type: Spontaneous
  Country: US (occurrence: US)
  Receive Date: 20191227
  Receipt Date: 20191227
  Transmission Date: 20200409
  Serious: Yes (Life-Threatening, Hospitalization, Disabling)
  Sender: FDA-Public Use
  Company Number: None

PATIENT
  Age: 63 Year
  Sex: Female
  Weight: 68.04 kg

DRUGS (1)
  1. RANITIDINE. [Suspect]
     Active Substance: RANITIDINE
     Indication: VOCAL CORD THICKENING
     Dosage: ?          QUANTITY:1 PILL;?
     Route: 048
     Dates: start: 20190117

REACTIONS (3)
  - Breast mass [None]
  - Recalled product administered [None]
  - Haematochezia [None]

NARRATIVE: CASE EVENT DATE: 20190117
